FAERS Safety Report 7814714-4 (Version None)
Quarter: 2011Q4

REPORT INFORMATION
  Report Type: 
  Country: None (occurrence: None)
  Receive Date: 20111014
  Receipt Date: 20110930
  Transmission Date: 20120403
  Serious: Yes (Hospitalization)
  Sender: FDA-Public Use
  Company Number: CA-ELI_LILLY_AND_COMPANY-CA201110000848

PATIENT
  Sex: Female

DRUGS (1)
  1. EVISTA [Suspect]
     Indication: PROPHYLAXIS
     Dosage: 60 MG, UNKNOWN
     Dates: end: 20110926

REACTIONS (1)
  - LOWER LIMB FRACTURE [None]
